FAERS Safety Report 17491891 (Version 2)
Quarter: 2020Q3

REPORT INFORMATION
  Report Type: Report from Study
  Country: None (occurrence: US)
  Receive Date: 20200304
  Receipt Date: 20200720
  Transmission Date: 20201102
  Serious: Yes (Hospitalization, Other)
  Sender: FDA-Public Use
  Company Number: US-ABBVIE-20K-163-3299875-00

PATIENT
  Age: 68 Year
  Sex: Female
  Weight: 52.21 kg

DRUGS (23)
  1. CREON [Suspect]
     Active Substance: PANCRELIPASE AMYLASE\PANCRELIPASE LIPASE\PANCRELIPASE PROTEASE
     Indication: PANCREATIC ENZYME REPLACEMENT THERAPY
  2. SPIRONOLACTONE. [Concomitant]
     Active Substance: SPIRONOLACTONE
     Indication: BLOOD POTASSIUM DECREASED
     Dosage: 25 MG TAKE 1/2 TABLET IN MORNING (COUNT 14)
     Dates: start: 20200109
  3. HYDROXYCHLOROQUINE [Concomitant]
     Active Substance: HYDROXYCHLOROQUINE
     Indication: PRODUCT USED FOR UNKNOWN INDICATION
     Dosage: 200 MG 1 1/2 TABLETS 2X DAILY (COUNT 42)
     Dates: start: 20200109
  4. BISACODYL. [Concomitant]
     Active Substance: BISACODYL
     Indication: LAXATIVE SUPPORTIVE CARE
     Dosage: 100 MG INSERT 1 SUPPOSITORY RECTALLY DAILY (COUNT 11)
     Dates: start: 20181221
  5. MELATONIN [Concomitant]
     Active Substance: MELATONIN
     Indication: SLEEP DISORDER THERAPY
     Dosage: 5 MG 1 TAB AT BED TIME AS NEEDED (COUNT 90)
     Dates: start: 20190412
  6. PROCTOSOL HC [Concomitant]
     Indication: HAEMORRHOIDS
     Dosage: APPLY TO THE AFFECTED AREAS 2 TIMES DAILY
     Dates: start: 20140225
  7. BENAZEPRIL [Concomitant]
     Active Substance: BENAZEPRIL HYDROCHLORIDE
     Indication: BLOOD PRESSURE MEASUREMENT
     Dosage: 5 MG, 1 TABLET IN EVENING (COUNT 28)
     Dates: start: 20200109
  8. TRIAMCINOLONE ACETONIDE. [Concomitant]
     Active Substance: TRIAMCINOLONE ACETONIDE
     Indication: STEROID THERAPY
     Dosage: 0.1% APPLY TOPICALLY 2 X S DAY (80 G NET WET)
     Dates: start: 20190420
  9. AZITHROMYCIN ANHYDROUS. [Concomitant]
     Active Substance: AZITHROMYCIN ANHYDROUS
     Indication: CELLULITIS
     Dosage: 250 MG 6 TABLETS IN PACKAGE (1ST 2 TAB/1 FOR 4 MORE DAYS)
     Dates: start: 20160818
  10. PRILOSEC [Concomitant]
     Active Substance: OMEPRAZOLE MAGNESIUM
     Indication: PRODUCT USED FOR UNKNOWN INDICATION
     Dosage: 20 MG 2 CAPSULES IN MORNING
     Dates: start: 20200109
  11. RESTASIS [Concomitant]
     Active Substance: CYCLOSPORINE
     Indication: SJOGREN^S SYNDROME
     Dosage: EYE DROPS?0.005% 1 DROP 2 TIMES A DAY FOR DRY EYES
     Dates: start: 20191018
  12. DOCUSATE SODIUM. [Concomitant]
     Active Substance: DOCUSATE SODIUM
     Indication: LAXATIVE SUPPORTIVE CARE
     Dosage: 100 MG 1 TABLET 3 TIMES A DAY
     Dates: start: 20190624
  13. CREON [Suspect]
     Active Substance: PANCRELIPASE AMYLASE\PANCRELIPASE LIPASE\PANCRELIPASE PROTEASE
     Indication: PANCREATITIS CHRONIC
     Dosage: 2 CAPSULE PRIOR TO MEAL AND 1 CAPSULE PRIOR TO SNACK
     Route: 048
     Dates: start: 2000
  14. NITROFURANTOIN. [Concomitant]
     Active Substance: NITROFURANTOIN
     Indication: URINARY TRACT INFECTION
     Dosage: NITROFURANTOIN MONOH ?100 MG EA, 1 CAPSULE IN EVENING (COUNT 28)
     Dates: start: 20200109
  15. MORPHINE [Concomitant]
     Active Substance: MORPHINE
     Indication: PAIN
     Dosage: 3.5MG/ML (3 MONTHS DOSE) DOSE 0.2497 MG/DAY (PER DAY)
  16. PEPCID AC [Concomitant]
     Active Substance: FAMOTIDINE
     Indication: PRODUCT USED FOR UNKNOWN INDICATION
     Dosage: 20 MG EA 1 TABLET AT BEDTIME (COUNT 28)
     Dates: start: 20200109
  17. ERGOCALCIFEROL. [Concomitant]
     Active Substance: ERGOCALCIFEROL
     Indication: PRODUCT USED FOR UNKNOWN INDICATION
     Dosage: 50000 IU 1 GEL CAP TWICE A WEEK SUN AND WED MORN (COUNT 8)
     Dates: start: 20200109
  18. LASIX [Concomitant]
     Active Substance: FUROSEMIDE
     Indication: PRODUCT USED FOR UNKNOWN INDICATION
     Dosage: 20 MG EA. 4 TABLETS IN MORNING
     Dates: start: 20200109
  19. EZETIMIBE. [Concomitant]
     Active Substance: EZETIMIBE
     Indication: BLOOD CHOLESTEROL ABNORMAL
     Dosage: 10 MG TAKE 1 TABLET AT BED TIME (COUNT 28)
     Dates: start: 20200109
  20. PAPAYA ENZYME [Concomitant]
     Indication: DYSPEPSIA
     Dosage: 4 CHEWABLE TABLETS WITH DINNER ((COUNT 120)
     Dates: start: 20190422
  21. MIRALAX [Concomitant]
     Active Substance: POLYETHYLENE GLYCOL 3350
     Indication: LAXATIVE SUPPORTIVE CARE
     Dosage: UP TO 2 X A DAY WITH 2 GLASS WATER DECREASE TO A IF WATERY STOOL
     Dates: start: 20181214
  22. DICLOFENAC SODIUM. [Concomitant]
     Active Substance: DICLOFENAC SODIUM
     Indication: OSTEOARTHRITIS
     Dosage: 1% APPLY 2 GM TO EFFECTED AREA 4X A DAY (100G NET WT)
     Dates: start: 20190513
  23. MUPIROCIN. [Concomitant]
     Active Substance: MUPIROCIN
     Indication: STAPHYLOCOCCAL INFECTION
     Dosage: 2 % APPLY 2 X A DAY WHERE SKIN INFECTION WAS (22 G NET WT)
     Dates: start: 20180820

REACTIONS (5)
  - Tremor [Recovered/Resolved]
  - Muscle spasms [Recovered/Resolved]
  - Blood potassium decreased [Recovering/Resolving]
  - Back pain [Recovered/Resolved]
  - Mobility decreased [Unknown]

NARRATIVE: CASE EVENT DATE: 20200206
